FAERS Safety Report 5225514-6 (Version None)
Quarter: 2007Q1

REPORT INFORMATION
  Report Type: 
  Country: None (occurrence: None)
  Receive Date: 20070131
  Receipt Date: 20070119
  Transmission Date: 20070707
  Serious: Yes (Death)
  Sender: FDA-Public Use
  Company Number: AU-PFIZER INC-2007005891

PATIENT
  Sex: Male
  Weight: 87 kg

DRUGS (6)
  1. SU-011,248 [Suspect]
     Indication: RENAL CELL CARCINOMA STAGE UNSPECIFIED
     Route: 048
  2. PREDNISOLONE [Concomitant]
     Route: 048
  3. SIMVASTATIN [Concomitant]
     Route: 048
     Dates: start: 20031001
  4. INDAPAMIDE [Concomitant]
     Route: 048
     Dates: start: 20041001
  5. WARFARIN SODIUM [Concomitant]
     Route: 048
     Dates: start: 19870422
  6. NEXIUM [Concomitant]
     Route: 048
     Dates: start: 20061207

REACTIONS (1)
  - DEATH [None]
